FAERS Safety Report 7064486-9 (Version None)
Quarter: 2010Q4

REPORT INFORMATION
  Report Type: 
  Country: None (occurrence: None)
  Receive Date: 20101027
  Receipt Date: 20101020
  Transmission Date: 20110411
  Serious: Yes (Hospitalization)
  Sender: FDA-Public Use
  Company Number: FR-PFIZER INC-2010134518

PATIENT
  Age: 52 Year
  Sex: Male
  Weight: 70 kg

DRUGS (2)
  1. SUTENT [Suspect]
     Indication: THYMOMA MALIGNANT
     Dosage: 50 MG, 1X/DAY
     Route: 048
     Dates: start: 20090701
  2. METHYLPREDNISOLONE [Concomitant]
     Indication: THYMOMA MALIGNANT
     Dosage: 16 MG, 2X/DAY
     Route: 048
     Dates: start: 20100608

REACTIONS (3)
  - GLOSSITIS [None]
  - MOUTH ULCERATION [None]
  - PARAPARESIS [None]
